FAERS Safety Report 23369471 (Version 1)
Quarter: 2024Q1

REPORT INFORMATION
  Report Type: Spontaneous
  Country: CN (occurrence: CN)
  Receive Date: 20240105
  Receipt Date: 20240105
  Transmission Date: 20240410
  Serious: Yes (Other)
  Sender: FDA-Public Use
  Company Number: CN-MYLANLABS-2023M1139175

PATIENT
  Age: 37 Year
  Sex: Female
  Weight: 50 kg

DRUGS (2)
  1. CELEBREX [Suspect]
     Active Substance: CELECOXIB
     Indication: Analgesic therapy
     Dosage: 0.2 GRAM, QD
     Route: 048
     Dates: start: 20231210, end: 20231210
  2. COBAMAMIDE [Concomitant]
     Active Substance: COBAMAMIDE
     Indication: Analgesic therapy
     Dosage: 0.5 MILLIGRAM, TID
     Route: 048
     Dates: start: 20231210, end: 20231210

REACTIONS (4)
  - Rash [Recovered/Resolved]
  - Pruritus [Recovered/Resolved]
  - Swelling of eyelid [Recovered/Resolved]
  - Lacrimation increased [Recovered/Resolved]

NARRATIVE: CASE EVENT DATE: 20231210
